FAERS Safety Report 6664694-2 (Version None)
Quarter: 2010Q2

REPORT INFORMATION
  Report Type: 
  Country: None (occurrence: None)
  Receive Date: 20100401
  Receipt Date: 20100312
  Transmission Date: 20101027
  Serious: Yes (Disabling)
  Sender: FDA-Public Use
  Company Number: CA-MERCK-1003USA01889

PATIENT
  Age: 74 Year
  Sex: Female

DRUGS (3)
  1. FOSAMAX PLUS D [Suspect]
     Route: 048
  2. CRESTOR [Concomitant]
     Route: 048
  3. THYROID [Concomitant]
     Route: 048

REACTIONS (6)
  - ARTHRITIS [None]
  - BURNING SENSATION [None]
  - GAIT DISTURBANCE [None]
  - MOBILITY DECREASED [None]
  - MYALGIA [None]
  - PAIN [None]
